FAERS Safety Report 7253617-3 (Version None)
Quarter: 2011Q1

REPORT INFORMATION
  Report Type: 
  Country: None (occurrence: None)
  Receive Date: 20110129
  Receipt Date: 20100309
  Transmission Date: 20110831
  Serious: No
  Sender: FDA-Public Use
  Company Number: US-ABBOTT-10P-163-0631339-00

PATIENT
  Sex: Male
  Weight: 104.42 kg

DRUGS (15)
  1. TRICOR [Concomitant]
     Route: 048
  2. ALTACE [Concomitant]
     Route: 048
  3. MULTI-VITAMIN [Concomitant]
     Route: 048
  4. ZETIA [Concomitant]
     Route: 048
  5. HUMIRA [Suspect]
     Dosage: DAY 8
  6. DOXAZOSIN [Concomitant]
     Route: 048
  7. LIPITOR [Concomitant]
     Route: 048
  8. PLAVIX [Concomitant]
     Route: 048
  9. HUMIRA [Suspect]
     Indication: PSORIASIS
     Dates: start: 20090309
  10. MOBIC [Concomitant]
     Route: 048
  11. HUMIRA [Suspect]
  12. MELOXICAM [Concomitant]
     Route: 048
  13. TOPROL-XL [Concomitant]
     Route: 048
  14. PAROXETINE HCL [Concomitant]
     Route: 048
  15. ASA [Concomitant]
     Route: 048

REACTIONS (2)
  - PRURITUS [None]
  - RASH MACULAR [None]
